FAERS Safety Report 7444129-2 (Version None)
Quarter: 2011Q2

REPORT INFORMATION
  Report Type: 
  Country: None (occurrence: None)
  Receive Date: 20110419
  Receipt Date: 20110413
  Transmission Date: 20111010
  Serious: Yes (Life-Threatening)
  Sender: FDA-Public Use
  Company Number: 2011SP016490

PATIENT
  Sex: Female

DRUGS (2)
  1. SODIUM CHLORIDE [Suspect]
     Indication: PRODUCT USED FOR UNKNOWN INDICATION
     Dosage: IV
     Route: 042
  2. ESMERON (ROCURONIUM BROMIDE /01245702/) [Suspect]
     Indication: ANAESTHESIA PROCEDURE
     Dosage: IV
     Route: 042

REACTIONS (4)
  - FLUSHING [None]
  - WRONG DRUG ADMINISTERED [None]
  - MEDICATION ERROR [None]
  - RESPIRATORY ARREST [None]
